FAERS Safety Report 6785779-6 (Version None)
Quarter: 2010Q2

REPORT INFORMATION
  Report Type: 
  Country: None (occurrence: None)
  Receive Date: 20100622
  Receipt Date: 20100622
  Transmission Date: 20101027
  Serious: Yes (Disabling)
  Sender: FDA-Public Use
  Company Number: None

PATIENT
  Age: 39 Year
  Sex: Female
  Weight: 90.7194 kg

DRUGS (1)
  1. ADALIMUMAB [Suspect]
     Indication: UVEITIS
     Dosage: 40MG Q 2 WEEKS SC
     Route: 058

REACTIONS (3)
  - MULTIPLE SCLEROSIS [None]
  - OPTIC NEURITIS [None]
  - VISUAL ACUITY REDUCED [None]
